FAERS Safety Report 25886747 (Version 1)
Quarter: 2025Q4

REPORT INFORMATION
  Report Type: Spontaneous
  Country: CN (occurrence: CN)
  Receive Date: 20251006
  Receipt Date: 20251006
  Transmission Date: 20260117
  Serious: Yes (Other)
  Sender: EPIC PHARM
  Company Number: CN-EPICPHARMA-CN-2025EPCLIT01125

PATIENT
  Age: 33 Year
  Sex: Female

DRUGS (4)
  1. CEFTRIAXONE SODIUM [Suspect]
     Active Substance: CEFTRIAXONE SODIUM
     Indication: Enteritis
     Route: 042
  2. CEFTRIAXONE SODIUM [Suspect]
     Active Substance: CEFTRIAXONE SODIUM
     Indication: Pancreatitis
  3. SOMATOSTATIN [Concomitant]
     Active Substance: SOMATOSTATIN
     Indication: Product used for unknown indication
     Dosage: 3-6 MG
     Route: 065
  4. ENOXAPARIN [Concomitant]
     Active Substance: ENOXAPARIN
     Indication: Product used for unknown indication
     Route: 058

REACTIONS (3)
  - Cholecystitis acute [Recovered/Resolved]
  - Cholelithiasis [Recovered/Resolved]
  - Product use in unapproved indication [Unknown]
